FAERS Safety Report 7418081-X (Version None)
Quarter: 2011Q2

REPORT INFORMATION
  Report Type: 
  Country: None (occurrence: None)
  Receive Date: 20110415
  Receipt Date: 20110412
  Transmission Date: 20111010
  Serious: Yes (Other)
  Sender: FDA-Public Use
  Company Number: US-ROXANE LABORATORIES, INC.-2011-RO-00502RO

PATIENT
  Age: 72 Year
  Sex: Female

DRUGS (6)
  1. QUETIAPINE [Suspect]
  2. CLOZAPINE [Suspect]
     Dosage: 175 MG
  3. NEFAZODONE [Suspect]
     Dosage: 100 MG
  4. CLONAZEPAM [Suspect]
     Dosage: 0.5 MG
  5. GABAPENTIN [Suspect]
     Dosage: 600 MG
  6. CITALOPRAM [Suspect]
     Dosage: 20 MG

REACTIONS (1)
  - PARKINSONISM [None]
